FAERS Safety Report 13194172 (Version 5)
Quarter: 2017Q2

REPORT INFORMATION
  Report Type: Report from Study
  Country: CA (occurrence: CA)
  Receive Date: 20170207
  Receipt Date: 20170608
  Transmission Date: 20170830
  Serious: Yes (Other)
  Sender: FDA-Public Use
  Company Number: PHHY2015CA097925

PATIENT
  Age: 40 Year
  Sex: Male

DRUGS (1)
  1. SANDOSTATIN LAR DEPOT [Suspect]
     Active Substance: OCTREOTIDE ACETATE
     Indication: NEUROENDOCRINE TUMOUR
     Dosage: 30 MG, EVERY 4 WEEKS
     Route: 030
     Dates: start: 20150724

REACTIONS (10)
  - Nail growth abnormal [Unknown]
  - Blood pressure systolic increased [Unknown]
  - Vomiting [Recovered/Resolved]
  - Erythema [Unknown]
  - Malaise [Unknown]
  - Ingrowing nail [Unknown]
  - Swelling [Unknown]
  - Liver disorder [Unknown]
  - Fatigue [Unknown]
  - Nausea [Not Recovered/Not Resolved]

NARRATIVE: CASE EVENT DATE: 20160504
